FAERS Safety Report 5964131-7 (Version None)
Quarter: 2008Q4

REPORT INFORMATION
  Report Type: 
  Country: None (occurrence: None)
  Receive Date: 20081124
  Receipt Date: 20081117
  Transmission Date: 20090506
  Serious: Yes (Other)
  Sender: FDA-Public Use
  Company Number: GB-B.I. PHARMACEUTICALS,INC./RIDGEFIELD-2008-UK-01759UK

PATIENT
  Age: 70 Year
  Sex: Male
  Weight: 108 kg

DRUGS (12)
  1. DIPYRIDAMOLE [Suspect]
     Indication: THROMBOSIS PROPHYLAXIS
     Dosage: 400MG
     Dates: start: 20060626
  2. IPRATROPIUM BROMIDE [Suspect]
     Indication: ASTHMA
     Dosage: 40MCG
     Route: 055
     Dates: start: 20050124
  3. CANDERSARTAN [Suspect]
     Indication: HYPERTENSION
     Dosage: 16MG
     Dates: start: 20080929
  4. FELODIPINE [Suspect]
     Indication: HYPERTENSION
     Dosage: 5MG
     Dates: start: 20051222
  5. SERETIDE [Suspect]
     Indication: ASTHMA
     Dosage: 2 DF
     Route: 055
     Dates: start: 20020901
  6. SIMVASTATIN [Suspect]
     Indication: HYPERCHOLESTEROLAEMIA
     Dosage: 20MG
     Dates: start: 20060530
  7. VENTOLIN [Suspect]
     Indication: ASTHMA
     Route: 055
  8. ASPIRIN [Concomitant]
     Dosage: 75MG
     Dates: start: 20060628
  9. BECLOMETHASONE DIPROPIONATE [Concomitant]
     Dosage: 4DF
     Route: 045
     Dates: start: 20020423
  10. LORATADINE [Concomitant]
     Dosage: 10MG
     Route: 065
     Dates: start: 20020426
  11. PARACETAMOL [Concomitant]
     Dates: start: 19991029
  12. TIOTROPIUM BROMIDE [Concomitant]
     Dosage: 18MCG
     Route: 055
     Dates: start: 20061013

REACTIONS (2)
  - ASTHMA [None]
  - FEELING ABNORMAL [None]
